FAERS Safety Report 12273544 (Version 3)
Quarter: 2016Q4

REPORT INFORMATION
  Report Type: Report from Study
  Country: US (occurrence: US)
  Receive Date: 20160415
  Receipt Date: 20161117
  Transmission Date: 20170207
  Serious: Yes (Other)
  Sender: FDA-Public Use
  Company Number: US-ASTRAZENECA-2016SE08513

PATIENT
  Age: 892 Month
  Sex: Male
  Weight: 78.9 kg

DRUGS (7)
  1. LYNPARZA [Suspect]
     Active Substance: OLAPARIB
     Indication: PROSTATE CANCER
     Route: 048
     Dates: start: 20150904, end: 20161109
  2. LYNPARZA [Suspect]
     Active Substance: OLAPARIB
     Indication: BRCA2 GENE MUTATION
     Route: 048
     Dates: start: 20150904, end: 20161109
  3. LYNPARZA [Suspect]
     Active Substance: OLAPARIB
     Indication: BRCA2 GENE MUTATION
     Route: 048
     Dates: start: 201509, end: 201601
  4. LYNPARZA [Suspect]
     Active Substance: OLAPARIB
     Indication: BRCA2 GENE MUTATION
     Route: 048
     Dates: start: 20160205
  5. LYNPARZA [Suspect]
     Active Substance: OLAPARIB
     Indication: PROSTATE CANCER
     Route: 048
     Dates: start: 201509, end: 201601
  6. LYNPARZA [Suspect]
     Active Substance: OLAPARIB
     Indication: PROSTATE CANCER
     Route: 048
     Dates: start: 20160205
  7. XGEVA [Concomitant]
     Active Substance: DENOSUMAB

REACTIONS (10)
  - Dizziness [Unknown]
  - Hypocalcaemia [Unknown]
  - Off label use [Unknown]
  - Haemoglobin decreased [Unknown]
  - Pain in extremity [Unknown]
  - Peripheral swelling [Not Recovered/Not Resolved]
  - Malignant neoplasm progression [Unknown]
  - Product use issue [Unknown]
  - Bone marrow failure [Unknown]
  - Dyspnoea [Unknown]

NARRATIVE: CASE EVENT DATE: 201509
